FAERS Safety Report 6385039-1 (Version None)
Quarter: 2009Q4

REPORT INFORMATION
  Report Type: 
  Country: None (occurrence: None)
  Receive Date: 20091002
  Receipt Date: 20090928
  Transmission Date: 20100525
  Serious: Yes (Hospitalization)
  Sender: FDA-Public Use
  Company Number: PHHO2009US11981

PATIENT
  Sex: Male
  Weight: 113 kg

DRUGS (5)
  1. BLINDED ACZ885 ACZ+SOLINF+COPD [Suspect]
     Dosage: DOUBLE-BLIND
     Route: 042
     Dates: start: 20080825
  2. BLINDED NO TREATMENT RECEIVED NOMED [Suspect]
     Dosage: DOUBLE-BLIND
     Route: 042
     Dates: start: 20080825
  3. BLINDED PLACEBO COMP-PLA+ [Suspect]
     Dosage: DOUBLE-BLIND
     Route: 042
     Dates: start: 20080825
  4. SPIRIVA [Concomitant]
     Indication: CHRONIC OBSTRUCTIVE PULMONARY DISEASE
     Dosage: UNK
  5. ADVAIR DISKUS 100/50 [Concomitant]
     Indication: CHRONIC OBSTRUCTIVE PULMONARY DISEASE
     Dosage: UNK

REACTIONS (1)
  - PNEUMONIA [None]
